FAERS Safety Report 9834534 (Version 2)
Quarter: 2014Q1

REPORT INFORMATION
  Report Type: Spontaneous
  Country: IT (occurrence: IT)
  Receive Date: 20140122
  Receipt Date: 20140122
  Transmission Date: 20141002
  Serious: Yes (Hospitalization)
  Sender: FDA-Public Use
  Company Number: IT-SA-2013SA119926

PATIENT
  Age: 51 Year
  Sex: Male

DRUGS (1)
  1. KARVEZIDE [Suspect]
     Indication: HYPERTENSION
     Dosage: STRENGTH: 300MG/25MG
     Route: 048
     Dates: start: 20121109, end: 20131109

REACTIONS (2)
  - Loss of consciousness [Recovering/Resolving]
  - Orthostatic hypotension [Recovering/Resolving]
